FAERS Safety Report 10648347 (Version 1)
Quarter: 2014Q4

REPORT INFORMATION
  Report Type: Spontaneous
  Country: US (occurrence: US)
  Receive Date: 20141212
  Receipt Date: 20141212
  Transmission Date: 20150529
  Serious: No
  Sender: FDA-Public Use
  Company Number: US-BAYER-2014-181244

PATIENT
  Age: 45 Year
  Sex: Female

DRUGS (1)
  1. CLIMARA [Suspect]
     Active Substance: ESTRADIOL
     Indication: MENOPAUSE
     Dosage: UNK
     Dates: start: 2002

REACTIONS (5)
  - Product adhesion issue [None]
  - Headache [None]
  - Product quality issue [None]
  - Night sweats [None]
  - Blood oestrogen decreased [None]
